FAERS Safety Report 8033642-5 (Version None)
Quarter: 2012Q1

REPORT INFORMATION
  Report Type: 
  Country: None (occurrence: None)
  Receive Date: 20120110
  Receipt Date: 20120109
  Transmission Date: 20120608
  Serious: Yes (Death, Other)
  Sender: FDA-Public Use
  Company Number: FR-ROCHE-800288

PATIENT
  Sex: Male
  Weight: 83 kg

DRUGS (3)
  1. OXALIPLATIN [Concomitant]
     Indication: COLORECTAL CANCER METASTATIC
  2. AVASTIN [Suspect]
     Indication: COLORECTAL CANCER
     Dosage: OTHER INDICATION: PULMONARY METASTASIS
     Route: 042
  3. FLUOROURACIL [Concomitant]
     Indication: COLORECTAL CANCER METASTATIC
     Dates: start: 20110725, end: 20110818

REACTIONS (6)
  - CEREBRAL HAEMORRHAGE [None]
  - THROMBOCYTOPENIA [None]
  - HYPERTENSION [None]
  - HYPERCREATININAEMIA [None]
  - MALAISE [None]
  - EPISTAXIS [None]
